FAERS Safety Report 5529722-6 (Version None)
Quarter: 2007Q4

REPORT INFORMATION
  Report Type: 
  Country: None (occurrence: None)
  Receive Date: 20071129
  Receipt Date: 20061215
  Transmission Date: 20080405
  Serious: No
  Sender: FDA-Public Use
  Company Number: US-ABBOTT-06P-163-0354503-00

PATIENT
  Sex: Female
  Weight: 82.628 kg

DRUGS (5)
  1. MERIDIA [Suspect]
     Indication: WEIGHT CONTROL
     Route: 048
     Dates: start: 20061211
  2. OXYCODONE HCL [Concomitant]
     Indication: PAIN
     Route: 048
     Dates: start: 20010101
  3. OXY IR [Concomitant]
     Indication: PAIN
     Route: 048
     Dates: start: 20030101
  4. AMITRIPTLINE HCL [Concomitant]
     Indication: INSOMNIA
     Route: 048
     Dates: start: 20040101
  5. ZOCOR [Concomitant]
     Indication: BLOOD CHOLESTEROL INCREASED
     Route: 048
     Dates: start: 19960101

REACTIONS (1)
  - WEIGHT INCREASED [None]
